FAERS Safety Report 5055605-4 (Version None)
Quarter: 2006Q3

REPORT INFORMATION
  Report Type: 
  Country: None (occurrence: None)
  Receive Date: 20060714
  Receipt Date: 20060626
  Transmission Date: 20061208
  Serious: Yes (Other)
  Sender: FDA-Public Use
  Company Number: US200606005413

PATIENT
  Age: 58 Year
  Sex: Male

DRUGS (2)
  1. FORTEO [Suspect]
     Dates: start: 20040826
  2. FORTEO [Concomitant]

REACTIONS (5)
  - COLLAPSE OF LUNG [None]
  - INJURY [None]
  - JOINT DISLOCATION [None]
  - RIB FRACTURE [None]
  - ROAD TRAFFIC ACCIDENT [None]
